FAERS Safety Report 6370865-5 (Version None)
Quarter: 2009Q3

REPORT INFORMATION
  Report Type: 
  Country: None (occurrence: None)
  Receive Date: 20090923
  Receipt Date: 20070515
  Transmission Date: 20100115
  Serious: Yes (Disabling, Other)
  Sender: FDA-Public Use
  Company Number: US-ASTRAZENECA-2006UW23927

PATIENT
  Age: 11871 Day
  Sex: Female
  Weight: 121.1 kg

DRUGS (45)
  1. SEROQUEL [Suspect]
     Indication: INSOMNIA
     Route: 048
     Dates: start: 20030101
  2. SEROQUEL [Suspect]
     Dosage: 25-100 MG
     Route: 048
     Dates: start: 20040728
  3. GEODON [Concomitant]
  4. TRILAFON [Concomitant]
  5. ZYPREXA [Concomitant]
  6. CELEXA [Concomitant]
  7. XANAX [Concomitant]
  8. CHLORPHENIRAMINE MALEATE [Concomitant]
     Dates: start: 20010409
  9. AMBIEN [Concomitant]
  10. VIOXX [Concomitant]
     Dates: start: 20020731
  11. ULTRACET [Concomitant]
     Dosage: 37.5/325
     Dates: start: 20021126
  12. METHYLPRED PAK [Concomitant]
     Dates: start: 19980922
  13. HYOSCYAMINE [Concomitant]
     Dates: start: 20021204
  14. METHOCARBAMOL [Concomitant]
     Dates: start: 20021231
  15. NEURONTIN [Concomitant]
     Dates: start: 20030109
  16. PRILOSEC [Concomitant]
     Dates: start: 20030115
  17. TRAZODONE [Concomitant]
     Dates: start: 20030115
  18. DIFLUCAN [Concomitant]
     Dates: start: 20030120
  19. FLEXERIL [Concomitant]
     Dates: start: 19980716
  20. ZONEGRAN [Concomitant]
     Dates: start: 20031014
  21. SONATA [Concomitant]
     Dates: start: 20040331
  22. INDOMETHACIN [Concomitant]
     Dates: start: 20040528
  23. AMARYL [Concomitant]
     Dates: start: 20040812
  24. SYNTHROID [Concomitant]
     Dosage: 0.075-200 MG
     Dates: start: 20040812
  25. LOTREL [Concomitant]
     Dosage: 5-10MG
     Dates: start: 20040816
  26. VOLTAREN-XR [Concomitant]
     Dates: start: 20050805
  27. IMITREX [Concomitant]
     Dates: start: 20040311
  28. NAPROXEN SODIUM [Concomitant]
     Dosage: 500-550 MG
     Dates: start: 19980306
  29. CEPHALEXIN [Concomitant]
     Dates: start: 19971125
  30. CARISOPRODOL [Concomitant]
     Dates: start: 19981208
  31. ZOCOR [Concomitant]
     Dates: start: 20050624
  32. PROTONIX [Concomitant]
     Dates: start: 20021201
  33. LUNESTA [Concomitant]
     Dates: start: 20050824
  34. BIAXIN [Concomitant]
     Dates: start: 20051214
  35. ALBUTEROL [Concomitant]
     Dates: start: 20030123
  36. CITALOPRAM [Concomitant]
     Dates: start: 20060424
  37. REMERON [Concomitant]
     Dates: start: 20040311
  38. GLUCOPHAGE [Concomitant]
     Dates: start: 20040311
  39. PHENERGAN [Concomitant]
     Dates: start: 20040311
  40. FIORICET [Concomitant]
     Dates: start: 20040311
  41. ULTRAM [Concomitant]
     Dates: start: 20040311
  42. PROPACET 100 [Concomitant]
     Dosage: 100-650MG
     Dates: start: 19981026
  43. VEETIDS [Concomitant]
     Dates: start: 19981106
  44. PROPRANOLOL [Concomitant]
     Dates: start: 19990126
  45. ACYCLOVIR [Concomitant]
     Dates: start: 20030221

REACTIONS (7)
  - BACK INJURY [None]
  - DEPRESSION [None]
  - DIABETES MELLITUS [None]
  - DIABETES MELLITUS INADEQUATE CONTROL [None]
  - DIABETIC KETOACIDOSIS [None]
  - TYPE 1 DIABETES MELLITUS [None]
  - TYPE 2 DIABETES MELLITUS [None]
